FAERS Safety Report 6675490-4 (Version None)
Quarter: 2010Q2

REPORT INFORMATION
  Report Type: 
  Country: None (occurrence: None)
  Receive Date: 20100409
  Receipt Date: 20100331
  Transmission Date: 20101027
  Serious: Yes (Hospitalization)
  Sender: FDA-Public Use
  Company Number: B0644528A

PATIENT
  Age: 17 Year
  Sex: Female

DRUGS (2)
  1. LAMICTAL CD [Suspect]
     Indication: EPILEPSY
     Route: 048
     Dates: start: 20100118, end: 20100209
  2. INTRAVENOUS CONTRAST [Suspect]
     Indication: DRUG USE FOR UNKNOWN INDICATION
     Route: 042
     Dates: start: 20100209

REACTIONS (8)
  - APHAGIA [None]
  - CONJUNCTIVITIS [None]
  - DERMATITIS BULLOUS [None]
  - GENITAL EROSION [None]
  - KERATITIS [None]
  - MOUTH ULCERATION [None]
  - PIGMENTATION DISORDER [None]
  - STEVENS-JOHNSON SYNDROME [None]
